FAERS Safety Report 9103345 (Version 1)
Quarter: 2013Q1

REPORT INFORMATION
  Report Type: Spontaneous
  Country: GB (occurrence: GB)
  Receive Date: 20130219
  Receipt Date: 20130219
  Transmission Date: 20140127
  Serious: Yes (Disabling, Other)
  Sender: FDA-Public Use
  Company Number: GB-PFIZER INC-2013058880

PATIENT
  Age: 3 Year
  Sex: Male
  Weight: 17 kg

DRUGS (4)
  1. REFACTO AF [Suspect]
     Indication: FACTOR VIII DEFICIENCY
     Dosage: 500 IU, 2X/WEEK
     Route: 042
     Dates: start: 20121102, end: 20130121
  2. TRANEXAMIC ACID [Concomitant]
     Dosage: UNK
  3. PARACETAMOL [Concomitant]
     Dosage: UNK
  4. SYTRON [Concomitant]
     Dosage: UNK

REACTIONS (1)
  - Factor VIII inhibition [Not Recovered/Not Resolved]
